FAERS Safety Report 13540320 (Version 2)
Quarter: 2017Q2

REPORT INFORMATION
  Report Type: Spontaneous
  Country: US (occurrence: US)
  Receive Date: 20170512
  Receipt Date: 20170613
  Transmission Date: 20170830
  Serious: Yes (Other)
  Sender: FDA-Public Use
  Company Number: US-AKORN PHARMACEUTICALS-2017AKN00575

PATIENT
  Age: 43 Year
  Sex: Female
  Weight: 55.33 kg

DRUGS (6)
  1. SHAROBEL [Concomitant]
     Active Substance: NORETHINDRONE
     Route: 048
  2. VITAMIN D [Concomitant]
     Active Substance: CHOLECALCIFEROL
  3. ACITRETIN. [Concomitant]
     Active Substance: ACITRETIN
     Dosage: 25 MG, 1X/DAY
     Route: 048
  4. MULTIVITAMIN [Concomitant]
     Active Substance: VITAMINS
     Dosage: 1 UNK, UNK
  5. MYORISAN [Suspect]
     Active Substance: ISOTRETINOIN
     Indication: TRANSIENT ACANTHOLYTIC DERMATOSIS
     Dosage: 20 MG, EVERY 48 HOURS
     Dates: start: 20170331, end: 20170428
  6. TRETINOIN. [Concomitant]
     Active Substance: TRETINOIN
     Dosage: UNK, 3X/WEEK

REACTIONS (6)
  - Off label use [Recovered/Resolved]
  - Arthralgia [Not Recovered/Not Resolved]
  - Drug ineffective for unapproved indication [Recovered/Resolved]
  - Myalgia [Not Recovered/Not Resolved]
  - Depression [Not Recovered/Not Resolved]
  - Disturbance in attention [Not Recovered/Not Resolved]

NARRATIVE: CASE EVENT DATE: 20170331
